FAERS Safety Report 9879112 (Version 1)
Quarter: 2014Q1

REPORT INFORMATION
  Report Type: Spontaneous
  Country: GB (occurrence: GB)
  Receive Date: 20140206
  Receipt Date: 20140206
  Transmission Date: 20141002
  Serious: Yes (Other)
  Sender: FDA-Public Use
  Company Number: PHHY2014GB011646

PATIENT
  Sex: 0

DRUGS (3)
  1. CICLOSPORIN [Suspect]
     Route: 064
  2. PREDNISOLONE [Suspect]
     Dosage: 17.5 MG, DAILY, MATERNAL DOSE
     Route: 064
  3. AZATHIOPRINE [Suspect]
     Dosage: 100 MG, DAILY, MATERNAL DOSE
     Route: 064

REACTIONS (2)
  - Premature baby [Unknown]
  - Foetal exposure during pregnancy [Unknown]
